FAERS Safety Report 10646944 (Version 2)
Quarter: 2021Q4

REPORT INFORMATION
  Report Type: Spontaneous
  Country: FR (occurrence: FR)
  Receive Date: 20141211
  Receipt Date: 20211006
  Transmission Date: 20220303
  Serious: Yes (Hospitalization, Other)
  Sender: FDA-Public Use
  Company Number: PHHY2014FR157878

PATIENT
  Age: 58 Year
  Sex: Female

DRUGS (7)
  1. EVEROLIMUS [Suspect]
     Active Substance: EVEROLIMUS
     Indication: Immunosuppression
     Dosage: UNK
     Route: 065
  2. BASILIXIMAB [Suspect]
     Active Substance: BASILIXIMAB
     Indication: Immunosuppression
     Dosage: UNK
     Route: 065
  3. TACROLIMUS [Suspect]
     Active Substance: TACROLIMUS
     Indication: Immunosuppression
     Dosage: UNK
     Route: 065
  4. MYCOPHENOLATE MOFETIL [Suspect]
     Active Substance: MYCOPHENOLATE MOFETIL
     Indication: Immunosuppression
     Dosage: UNK
     Route: 065
  5. DEXAMETHASONE [Suspect]
     Active Substance: DEXAMETHASONE
     Indication: Chemotherapy
     Dosage: UNK
     Route: 065
     Dates: start: 201101
  6. BORTEZOMIB [Suspect]
     Active Substance: BORTEZOMIB
     Indication: Chemotherapy
     Dosage: UNK
     Route: 065
  7. MELPHALAN [Suspect]
     Active Substance: MELPHALAN
     Indication: Chemotherapy
     Dosage: UNK
     Route: 065
     Dates: start: 201101

REACTIONS (11)
  - Renal amyloidosis [Recovered/Resolved]
  - Oedema peripheral [Unknown]
  - Proteinuria [Recovering/Resolving]
  - Kidney fibrosis [Unknown]
  - Myelodysplastic syndrome [Unknown]
  - Thrombocytopenia [Unknown]
  - Cytomegalovirus infection reactivation [Unknown]
  - Parvovirus B19 infection [Unknown]
  - Alopecia [Unknown]
  - Drug intolerance [Unknown]
  - Therapeutic response decreased [Unknown]
